FAERS Safety Report 5287036-6 (Version None)
Quarter: 2007Q1

REPORT INFORMATION
  Report Type: 
  Country: None (occurrence: None)
  Receive Date: 20070330
  Receipt Date: 20070320
  Transmission Date: 20070707
  Serious: Yes (Hospitalization)
  Sender: FDA-Public Use
  Company Number: 237960

PATIENT
  Age: 59 Year
  Sex: Male

DRUGS (2)
  1. EFALIZUMAB (EFALIZUMAB) PWDR + SOLVENT, INJECTIN SOLN, 125MG [Suspect]
     Indication: PSORIASIS
  2. ETANERCEPT (ETANERCEPT) [Concomitant]

REACTIONS (6)
  - ARTHRALGIA [None]
  - BLISTER [None]
  - PEMPHIGOID [None]
  - PRURITUS [None]
  - RASH ERYTHEMATOUS [None]
  - RASH PUSTULAR [None]
